FAERS Safety Report 6932163-8 (Version None)
Quarter: 2010Q3

REPORT INFORMATION
  Report Type: 
  Country: None (occurrence: None)
  Receive Date: 20100819
  Receipt Date: 20100811
  Transmission Date: 20110219
  Serious: Yes (Hospitalization)
  Sender: FDA-Public Use
  Company Number: B0669444A

PATIENT
  Sex: Female

DRUGS (2)
  1. REQUIP [Suspect]
     Indication: PARKINSON'S DISEASE
     Dosage: 3MG TWICE PER DAY
     Route: 048
     Dates: start: 20091125, end: 20100119
  2. PREVISCAN [Suspect]
     Indication: THROMBOPHLEBITIS
     Dosage: 1UNIT PER DAY
     Route: 048

REACTIONS (5)
  - CEREBELLAR HAEMATOMA [None]
  - HEADACHE [None]
  - HYDROCEPHALUS [None]
  - NAUSEA [None]
  - VOMITING [None]
